FAERS Safety Report 8572931-2 (Version None)
Quarter: 2012Q2

REPORT INFORMATION
  Report Type: 
  Country: None (occurrence: None)
  Receive Date: 20120423
  Receipt Date: 20081104
  Transmission Date: 20120825
  Serious: Yes (Other)
  Sender: FDA-Public Use
  Company Number: PHEH2008US09925

PATIENT

DRUGS (1)
  1. EXJADE [Suspect]
     Dosage: , ORAL
     Route: 048

REACTIONS (1)
  - DEAFNESS [None]
